FAERS Safety Report 10235075 (Version 1)
Quarter: 2014Q2

REPORT INFORMATION
  Report Type: Spontaneous
  Country: US (occurrence: US)
  Receive Date: 20140613
  Receipt Date: 20140613
  Transmission Date: 20141212
  Serious: No
  Sender: FDA-Public Use
  Company Number: US-009507513-1406USA003372

PATIENT
  Age: 82 Year
  Sex: Male

DRUGS (13)
  1. MIRTAZAPINE [Suspect]
     Indication: DEPRESSION
  2. DIAZEPAM [Suspect]
     Indication: DEPRESSION
  3. FLUOXETINE [Suspect]
     Indication: DEPRESSION
  4. PHENELZINE SULFATE [Suspect]
     Indication: DEPRESSION
  5. BUPROPION HYDROCHLORIDE [Suspect]
     Indication: DEPRESSION
  6. OLANZAPINE [Suspect]
     Indication: DEPRESSION
  7. ESCITALOPRAM [Suspect]
     Indication: DEPRESSION
  8. QUETIAPINE FUMARATE [Suspect]
     Indication: DEPRESSION
  9. SELEGILINE [Suspect]
     Indication: DEPRESSION
  10. SERTRALINE HYDROCHLORIDE [Suspect]
     Indication: DEPRESSION
  11. TRAZODONE HYDROCHLORIDE [Suspect]
     Indication: DEPRESSION
  12. CLONAZEPAM [Suspect]
     Indication: DEPRESSION
  13. LORAZEPAM [Suspect]
     Indication: DEPRESSION

REACTIONS (1)
  - Drug ineffective [Unknown]
